FAERS Safety Report 25667468 (Version 1)
Quarter: 2025Q3

REPORT INFORMATION
  Report Type: Spontaneous
  Country: US (occurrence: US)
  Receive Date: 20250811
  Receipt Date: 20250811
  Transmission Date: 20251020
  Serious: No
  Sender: ALEXION PHARMACEUTICALS
  Company Number: US-AstraZeneca-CH-00927498A

PATIENT
  Age: 68 Year
  Sex: Male

DRUGS (1)
  1. BRILINTA [Suspect]
     Active Substance: TICAGRELOR
     Dosage: UNK UNK, BID
     Route: 065
     Dates: start: 20250616

REACTIONS (4)
  - Urticaria [Not Recovered/Not Resolved]
  - Hypersensitivity [Unknown]
  - Blood cholesterol abnormal [Unknown]
  - Measles [Unknown]

NARRATIVE: CASE EVENT DATE: 20250807
